FAERS Safety Report 9880569 (Version 2)
Quarter: 2014Q3

REPORT INFORMATION
  Report Type: Spontaneous
  Country: CH (occurrence: CH)
  Receive Date: 20140207
  Receipt Date: 20140721
  Transmission Date: 20150326
  Serious: Yes (Hospitalization, Other)
  Sender: FDA-Public Use
  Company Number: CH-JNJFOC-20140202418

PATIENT
  Age: 52 Year
  Sex: Male

DRUGS (17)
  1. DARUNAVIR [Interacting]
     Active Substance: DARUNAVIR
     Indication: HIV TEST POSITIVE
     Route: 048
  2. RALTEGRAVIR [Concomitant]
     Active Substance: RALTEGRAVIR
     Route: 065
  3. LEVETIRACETAM. [Concomitant]
     Active Substance: LEVETIRACETAM
     Route: 065
  4. DARUNAVIR [Interacting]
     Active Substance: DARUNAVIR
     Indication: ANTIVIRAL TREATMENT
     Route: 048
  5. RITONAVIR [Interacting]
     Active Substance: RITONAVIR
     Indication: HIV TEST POSITIVE
     Route: 065
  6. TERBINAFINE [Concomitant]
     Active Substance: TERBINAFINE
     Route: 065
  7. RIVAROXABAN [Suspect]
     Active Substance: RIVAROXABAN
     Indication: ANKLE FRACTURE
     Route: 048
  8. RIVAROXABAN [Suspect]
     Active Substance: RIVAROXABAN
     Indication: THROMBOSIS PROPHYLAXIS
     Route: 048
  9. LAMOTRIGINE. [Concomitant]
     Active Substance: LAMOTRIGINE
     Route: 065
  10. RITONAVIR [Interacting]
     Active Substance: RITONAVIR
     Indication: ANTIVIRAL TREATMENT
     Route: 065
  11. ETRAVIRINE [Concomitant]
     Active Substance: ETRAVIRINE
     Route: 065
  12. TENOFOVIR [Concomitant]
     Active Substance: TENOFOVIR
     Route: 065
  13. PANTOPRAZOLE [Concomitant]
     Active Substance: PANTOPRAZOLE SODIUM
     Route: 065
  14. RIVAROXABAN [Suspect]
     Active Substance: RIVAROXABAN
     Indication: ANKLE FRACTURE
     Route: 048
  15. RIVAROXABAN [Suspect]
     Active Substance: RIVAROXABAN
     Indication: THROMBOSIS PROPHYLAXIS
     Route: 048
  16. GEMFIBROZIL. [Concomitant]
     Active Substance: GEMFIBROZIL
     Route: 065
  17. LAMIVUDINE. [Concomitant]
     Active Substance: LAMIVUDINE
     Route: 065

REACTIONS (5)
  - Gastrointestinal haemorrhage [Recovered/Resolved]
  - Diarrhoea infectious [Recovered/Resolved]
  - Drug level increased [Unknown]
  - Dehydration [Unknown]
  - Drug interaction [Unknown]

NARRATIVE: CASE EVENT DATE: 201202
